FAERS Safety Report 16247366 (Version 1)
Quarter: 2019Q2

REPORT INFORMATION
  Report Type: Spontaneous
  Country: US (occurrence: US)
  Receive Date: 20190322
  Receipt Date: 20190322
  Transmission Date: 20190711
  Serious: Yes (Hospitalization)
  Sender: FDA-Public Use
  Company Number: None

PATIENT
  Age: 76 Year
  Sex: Male

DRUGS (23)
  1. PEPCID [Concomitant]
     Active Substance: FAMOTIDINE
  2. METOLAZONE. [Concomitant]
     Active Substance: METOLAZONE
  3. VENTOLIN HFA [Concomitant]
     Active Substance: ALBUTEROL SULFATE
  4. HYTRIN [Concomitant]
     Active Substance: TERAZOSIN HYDROCHLORIDE
  5. ASPIRIN. [Concomitant]
     Active Substance: ASPIRIN
  6. PREDNISONE. [Concomitant]
     Active Substance: PREDNISONE
  7. OPSUMIT [Suspect]
     Active Substance: MACITENTAN
     Indication: PULMONARY ARTERIAL HYPERTENSION
     Route: 048
     Dates: start: 201803
  8. ALBUTEROL. [Concomitant]
     Active Substance: ALBUTEROL
  9. SPIRIVA RESPIMAT [Concomitant]
     Active Substance: TIOTROPIUM BROMIDE
  10. LIPITOR [Concomitant]
     Active Substance: ATORVASTATIN CALCIUM
  11. WARFARIN [Concomitant]
     Active Substance: WARFARIN
  12. CELEXA [Concomitant]
     Active Substance: CITALOPRAM HYDROBROMIDE
  13. GUAIFENESIN. [Concomitant]
     Active Substance: GUAIFENESIN
  14. POTASSIUM CHLORIDE. [Concomitant]
     Active Substance: POTASSIUM CHLORIDE
  15. COLACE [Concomitant]
     Active Substance: DOCUSATE SODIUM
  16. ADVAIR DISKUS [Concomitant]
     Active Substance: FLUTICASONE PROPIONATE\SALMETEROL XINAFOATE
  17. GABAPENTIN. [Concomitant]
     Active Substance: GABAPENTIN
  18. DOXYCYCLINE. [Concomitant]
     Active Substance: DOXYCYCLINE
  19. REVATIO [Concomitant]
     Active Substance: SILDENAFIL CITRATE
  20. SENNA [Concomitant]
     Active Substance: SENNA LEAF\SENNOSIDES\SENNOSIDES A AND B
  21. LASIX [Concomitant]
     Active Substance: FUROSEMIDE
  22. DIGOXIN. [Concomitant]
     Active Substance: DIGOXIN
  23. METOPROLOL. [Concomitant]
     Active Substance: METOPROLOL

REACTIONS (2)
  - Chronic obstructive pulmonary disease [None]
  - Respiratory failure [None]

NARRATIVE: CASE EVENT DATE: 20190222
